FAERS Safety Report 6565531-7 (Version None)
Quarter: 2010Q1

REPORT INFORMATION
  Report Type: 
  Country: None (occurrence: None)
  Receive Date: 20100201
  Receipt Date: 20100121
  Transmission Date: 20100710
  Serious: Yes (Other)
  Sender: FDA-Public Use
  Company Number: FR-BAXTER-2010BH001719

PATIENT
  Age: 3 Day
  Sex: Female

DRUGS (1)
  1. ENDOXAN BAXTER [Suspect]
     Indication: DRUG EXPOSURE DURING PREGNANCY
     Route: 065

REACTIONS (4)
  - DELAYED PUBERTY [None]
  - DRUG EXPOSURE DURING PREGNANCY [None]
  - OVARIAN CYST [None]
  - VESICOURETERIC REFLUX [None]
